FAERS Safety Report 17282697 (Version 1)
Quarter: 2020Q1

REPORT INFORMATION
  Report Type: Spontaneous
  Country: US (occurrence: US)
  Receive Date: 20200117
  Receipt Date: 20200117
  Transmission Date: 20200409
  Serious: No
  Sender: FDA-Public Use
  Company Number: None

PATIENT
  Age: 64 Year
  Sex: Female
  Weight: 56.25 kg

DRUGS (11)
  1. PROGRAF [Concomitant]
     Active Substance: TACROLIMUS
  2. XPOVIO [Suspect]
     Active Substance: SELINEXOR
     Indication: PLASMA CELL MYELOMA
     Dosage: ?          OTHER FREQUENCY:ONCE PER WEEK;?
     Route: 048
     Dates: start: 20191023
  3. METOPROLOL. [Concomitant]
     Active Substance: METOPROLOL
  4. PEPCID [Concomitant]
     Active Substance: FAMOTIDINE
  5. BACTRIM DS [Concomitant]
     Active Substance: SULFAMETHOXAZOLE\TRIMETHOPRIM
  6. MAGNESIUM MALATE. [Concomitant]
     Active Substance: MAGNESIUM MALATE
  7. NORVASC [Concomitant]
     Active Substance: AMLODIPINE BESYLATE
  8. OLANZAPINE. [Concomitant]
     Active Substance: OLANZAPINE
  9. ONDANSETRON [Concomitant]
     Active Substance: ONDANSETRON
  10. ACYCLOVIR. [Concomitant]
     Active Substance: ACYCLOVIR
  11. KEPPRA [Concomitant]
     Active Substance: LEVETIRACETAM

REACTIONS (1)
  - Disease progression [None]

NARRATIVE: CASE EVENT DATE: 20200116
